FAERS Safety Report 4626281-7 (Version None)
Quarter: 2005Q2

REPORT INFORMATION
  Report Type: 
  Country: None (occurrence: None)
  Receive Date: 20050404
  Receipt Date: 20050309
  Transmission Date: 20051028
  Serious: Yes (Hospitalization)
  Sender: FDA-Public Use
  Company Number: CA-ROCHE-399127

PATIENT
  Age: 60 Year
  Sex: Female
  Weight: 73.4 kg

DRUGS (6)
  1. PEG-INTERFERON ALFA 2A (RO 25-8310) [Suspect]
     Dosage: DOSAGE FORM REPORTED AS PREFILLED SYRINGE.
     Route: 058
     Dates: start: 20041214, end: 20050322
  2. RIBAVIRIN [Suspect]
     Route: 048
     Dates: start: 20041214, end: 20050309
  3. RIBAVIRIN [Suspect]
     Route: 048
     Dates: start: 20050309, end: 20050322
  4. INSULIN [Concomitant]
  5. CALCIUM GLUCONATE [Concomitant]
  6. NORTRIPTYLINE HCL [Concomitant]

REACTIONS (10)
  - ASTHENIA [None]
  - DIZZINESS [None]
  - DYSPNOEA EXERTIONAL [None]
  - FALL [None]
  - HAEMOGLOBIN DECREASED [None]
  - HEPATITIS C RNA POSITIVE [None]
  - HIP SWELLING [None]
  - LOCALISED OEDEMA [None]
  - OEDEMA PERIPHERAL [None]
  - SENSATION OF HEAVINESS [None]
